FAERS Safety Report 9087578 (Version 1)
Quarter: 2013Q1

REPORT INFORMATION
  Report Type: Report from Study
  Country: US (occurrence: US)
  Receive Date: 20130130
  Receipt Date: 20130130
  Transmission Date: 20140127
  Serious: No
  Sender: FDA-Public Use
  Company Number: US-ABBOTT-12P-163-0989027-00

PATIENT
  Sex: Female
  Weight: 99.88 kg

DRUGS (3)
  1. HUMIRA [Suspect]
     Indication: PSORIASIS
     Dates: end: 2011
  2. HUMIRA [Suspect]
     Dates: start: 201209, end: 201209
  3. UNKNOWN MEDICATION [Concomitant]
     Indication: ASTHMA

REACTIONS (1)
  - Psoriasis [Not Recovered/Not Resolved]
